FAERS Safety Report 11159312 (Version 2)
Quarter: 2015Q2

REPORT INFORMATION
  Report Type: Report from Study
  Country: BE (occurrence: BE)
  Receive Date: 20150603
  Receipt Date: 20150624
  Transmission Date: 20150821
  Serious: Yes (Hospitalization)
  Sender: FDA-Public Use
  Company Number: BE-ABBVIE-14P-013-1235856-00

PATIENT
  Sex: Male

DRUGS (7)
  1. DUODOPA [Suspect]
     Active Substance: CARBIDOPA\LEVODOPA
     Dosage: DOSE CONTINUOUSLY MONITORED AND ADAPTED
     Route: 050
     Dates: start: 20130321, end: 20140305
  2. DUODOPA [Suspect]
     Active Substance: CARBIDOPA\LEVODOPA
     Dosage: AM=3 ML, CD=4.3 ML/H DURING 16H, ED=2 ML
     Route: 050
     Dates: start: 20140305
  3. DUODOPA [Suspect]
     Active Substance: CARBIDOPA\LEVODOPA
     Route: 050
     Dates: end: 20150529
  4. DUODOPA [Suspect]
     Active Substance: CARBIDOPA\LEVODOPA
     Dosage: AM= 3ML, CD=4.3 ML/H DURING 16H, ED=2 ML
     Route: 050
     Dates: end: 20140902
  5. DUODOPA [Suspect]
     Active Substance: CARBIDOPA\LEVODOPA
     Dosage: CD 4.3 ML/HR
     Route: 050
     Dates: start: 20150529, end: 20150617
  6. DUODOPA [Suspect]
     Active Substance: CARBIDOPA\LEVODOPA
     Indication: PARKINSON^S DISEASE
     Dosage: AM=7 ML, CD=4.2 ML/H DURING 16H, ED=2 ML
     Route: 050
     Dates: start: 20121203, end: 20130321
  7. DUODOPA [Suspect]
     Active Substance: CARBIDOPA\LEVODOPA
     Dosage: AM 3ML, CD 4.3ML/H IN 16HRS, ND 3.3ML/H IN 8HRS, ED 2ML
     Route: 050
     Dates: start: 20140902

REACTIONS (9)
  - Freezing phenomenon [Not Recovered/Not Resolved]
  - Hallucination [Not Recovered/Not Resolved]
  - Confusional state [Not Recovered/Not Resolved]
  - Agitation [Unknown]
  - Device occlusion [Recovered/Resolved]
  - On and off phenomenon [Unknown]
  - Gastrointestinal tube removal [Recovered/Resolved]
  - Incorrect route of drug administration [Unknown]
  - Cognitive disorder [Unknown]
